FAERS Safety Report 5168312-4 (Version None)
Quarter: 2006Q4

REPORT INFORMATION
  Report Type: 
  Country: None (occurrence: None)
  Receive Date: 20061201
  Receipt Date: 20061120
  Transmission Date: 20070319
  Serious: Yes (Death, Hospitalization)
  Sender: FDA-Public Use
  Company Number: A-CH2006-13456

PATIENT
  Age: 60 Year
  Sex: Male

DRUGS (4)
  1. TRACLEER [Suspect]
     Indication: PULMONARY HYPERTENSION
     Dosage: ORAL
     Route: 048
     Dates: start: 20050501, end: 20061107
  2. HEPSERA [Concomitant]
  3. MAXILASE            (ALPHA-AMYLASE SWINE PANCREAS) [Concomitant]
  4. PREVISCAN                 (FLUINDIONE) [Concomitant]

REACTIONS (13)
  - CYTOLYTIC HEPATITIS [None]
  - EOSINOPHILIA [None]
  - FATIGUE [None]
  - HEPATIC FAILURE [None]
  - LUNG INFECTION [None]
  - MALAISE [None]
  - PAIN IN EXTREMITY [None]
  - PULMONARY SEPSIS [None]
  - RENAL FAILURE [None]
  - RHABDOMYOLYSIS [None]
  - RIGHT VENTRICULAR FAILURE [None]
  - SEPTIC SHOCK [None]
  - TOXOPLASMOSIS [None]
